FAERS Safety Report 5310525-2 (Version None)
Quarter: 2007Q2

REPORT INFORMATION
  Report Type: 
  Country: None (occurrence: None)
  Receive Date: 20070427
  Receipt Date: 20070420
  Transmission Date: 20071010
  Serious: Yes (Disabling, Other)
  Sender: FDA-Public Use
  Company Number: GB-MERCK-0704USA05022

PATIENT
  Age: 66 Year
  Sex: Female

DRUGS (1)
  1. PRINIVIL [Suspect]
     Indication: HYPERTENSION
     Route: 048
     Dates: start: 20070307, end: 20070309

REACTIONS (4)
  - PAIN [None]
  - RASH MACULAR [None]
  - RASH PRURITIC [None]
  - SKIN EXFOLIATION [None]
